FAERS Safety Report 6520744-5 (Version None)
Quarter: 2009Q4

REPORT INFORMATION
  Report Type: 
  Country: None (occurrence: None)
  Receive Date: 20091229
  Receipt Date: 20091223
  Transmission Date: 20100525
  Serious: Yes (Life-Threatening, Hospitalization)
  Sender: FDA-Public Use
  Company Number: GXKR2009GB13824

PATIENT
  Age: 73 Year
  Sex: Female
  Weight: 150 kg

DRUGS (12)
  1. METFORMIN (NGX) [Suspect]
     Route: 065
  2. MELOXICAM [Suspect]
     Route: 065
  3. CEFACLOR [Concomitant]
     Route: 065
  4. CO-FLUAMPICIL [Concomitant]
     Route: 065
  5. ERYTHROMYCIN [Concomitant]
     Route: 065
  6. GABAPENTIN [Concomitant]
     Route: 065
  7. HUMALOG [Concomitant]
     Route: 065
  8. INSULIN LISPRO [Concomitant]
     Route: 065
  9. LOPERAMIDE [Concomitant]
     Route: 065
  10. OMEPRAZOLE [Concomitant]
     Route: 065
  11. OXYBUTYNIN CHLORIDE [Concomitant]
     Route: 065
  12. WARFARIN SODIUM [Concomitant]
     Route: 065

REACTIONS (1)
  - HYPERKALAEMIA [None]
